FAERS Safety Report 6736585-X (Version None)
Quarter: 2010Q2

REPORT INFORMATION
  Report Type: 
  Country: None (occurrence: None)
  Receive Date: 20100521
  Receipt Date: 20100513
  Transmission Date: 20101027
  Serious: No
  Sender: FDA-Public Use
  Company Number: B0626819A

PATIENT
  Sex: Female

DRUGS (3)
  1. RELENZA [Suspect]
     Indication: INFLUENZA
     Dosage: 20MG PER DAY
     Route: 055
     Dates: start: 20100113
  2. CALONAL [Concomitant]
     Indication: HEADACHE
     Route: 048
     Dates: start: 20100113
  3. LAXOBERON [Concomitant]
     Indication: CONSTIPATION
     Route: 048
     Dates: start: 20100115

REACTIONS (1)
  - DRUG EXPOSURE DURING PREGNANCY [None]
